FAERS Safety Report 8584625-8 (Version None)
Quarter: 2012Q3

REPORT INFORMATION
  Report Type: 
  Country: None (occurrence: None)
  Receive Date: 20120730
  Receipt Date: 20120719
  Transmission Date: 20120928
  Serious: Yes (Hospitalization, Other)
  Sender: FDA-Public Use
  Company Number: 2012AP002210

PATIENT
  Age: 31 Year
  Sex: Female

DRUGS (2)
  1. LEFLUNOMIDE [Suspect]
     Indication: BK VIRUS INFECTION
  2. LEFLUNOMIDE [Suspect]
     Indication: OFF LABEL USE

REACTIONS (7)
  - HEPATIC FAILURE [None]
  - RENAL FAILURE [None]
  - RENAL TRANSPLANT [None]
  - SURGICAL PROCEDURE REPEATED [None]
  - OFF LABEL USE [None]
  - DRUG-INDUCED LIVER INJURY [None]
  - LIVER TRANSPLANT [None]
